FAERS Safety Report 8464442-X (Version None)
Quarter: 2012Q2

REPORT INFORMATION
  Report Type: 
  Country: None (occurrence: None)
  Receive Date: 20120626
  Receipt Date: 20120618
  Transmission Date: 20120825
  Serious: No
  Sender: FDA-Public Use
  Company Number: US-BIOGENIDEC-2012BI021804

PATIENT
  Age: 34 Year
  Sex: Male

DRUGS (2)
  1. AVONEX [Suspect]
     Indication: MULTIPLE SCLEROSIS
     Route: 030
     Dates: start: 20120202, end: 20120401
  2. AVONEX [Suspect]
     Route: 030
     Dates: start: 20120531

REACTIONS (2)
  - SKIN LESION [None]
  - INJECTION SITE PAIN [None]
